FAERS Safety Report 5598136-5 (Version None)
Quarter: 2008Q1

REPORT INFORMATION
  Report Type: 
  Country: None (occurrence: None)
  Receive Date: 20080117
  Receipt Date: 20080117
  Transmission Date: 20080703
  Serious: Yes (Hospitalization)
  Sender: FDA-Public Use
  Company Number: None

PATIENT
  Age: 60 Year
  Sex: Male
  Weight: 145.151 kg

DRUGS (7)
  1. VYTORIN [Suspect]
     Indication: BLOOD CHOLESTEROL INCREASED
     Dosage: ONE TAB ONCE DAILY ORALLY
     Route: 048
     Dates: start: 20070323, end: 20070616
  2. DOXAZOSIN [Concomitant]
  3. WARFARIN SODIUM [Concomitant]
  4. ACTOS-PLUS [Concomitant]
  5. ATACARD [Concomitant]
  6. LISINIPRIL [Concomitant]
  7. GLIPZIDE [Concomitant]

REACTIONS (7)
  - ABASIA [None]
  - ANOREXIA [None]
  - ASTHENIA [None]
  - ATRIAL FIBRILLATION [None]
  - FALL [None]
  - MALAISE [None]
  - RENAL FAILURE [None]
